FAERS Safety Report 21034884 (Version 28)
Quarter: 2024Q1

REPORT INFORMATION
  Report Type: Spontaneous
  Country: US (occurrence: US)
  Receive Date: 20220701
  Receipt Date: 20240124
  Transmission Date: 20240409
  Serious: No
  Sender: FDA-Public Use
  Company Number: US-PFIZER INC-202200913620

PATIENT
  Age: 81 Year
  Sex: Male

DRUGS (1)
  1. PAXLOVID [Suspect]
     Active Substance: NIRMATRELVIR\RITONAVIR
     Indication: COVID-19 treatment
     Dosage: UNK, (2ND CYCLE)
     Dates: start: 202206, end: 20220629

REACTIONS (4)
  - Therapeutic product effect incomplete [Recovering/Resolving]
  - COVID-19 [Unknown]
  - Disease recurrence [Unknown]
  - Malaise [Unknown]
